FAERS Safety Report 9905267 (Version 2)
Quarter: 2014Q1

REPORT INFORMATION
  Report Type: Spontaneous
  Country: US (occurrence: US)
  Receive Date: 20140218
  Receipt Date: 20140331
  Transmission Date: 20141002
  Serious: Yes (Hospitalization)
  Sender: FDA-Public Use
  Company Number: US-B.I. PHARMACEUTICALS,INC./RIDGEFIELD-2014-BI-06134BP

PATIENT
  Sex: Male
  Weight: 81.65 kg

DRUGS (11)
  1. PRADAXA [Suspect]
     Indication: ATRIAL FIBRILLATION
     Dosage: 150 MG
     Route: 065
     Dates: start: 20110328, end: 20110402
  2. ASPIRIN [Concomitant]
     Route: 065
  3. CLINDAMYCIN [Concomitant]
     Route: 065
  4. CEPHALEXIN [Concomitant]
     Route: 065
  5. METHYLPREDNISONE [Concomitant]
     Route: 065
  6. ALBUTEROL [Concomitant]
     Route: 065
  7. CIPROFLOXACIN [Concomitant]
     Route: 065
  8. TRAMADOL [Concomitant]
     Route: 065
  9. LIPITOR [Concomitant]
     Route: 065
  10. ARAVA [Concomitant]
     Route: 065
  11. METOPROLOL [Concomitant]
     Route: 065

REACTIONS (2)
  - Gastrointestinal haemorrhage [Unknown]
  - Haemorrhagic anaemia [Unknown]
